FAERS Safety Report 5304156-8 (Version None)
Quarter: 2007Q2

REPORT INFORMATION
  Report Type: 
  Country: None (occurrence: None)
  Receive Date: 20070423
  Receipt Date: 20070412
  Transmission Date: 20071010
  Serious: Yes (Hospitalization, Other)
  Sender: FDA-Public Use
  Company Number: PHEH2007US05360

PATIENT
  Age: 48 Year
  Sex: Female

DRUGS (1)
  1. ZELNORM [Suspect]
     Indication: IRRITABLE BOWEL SYNDROME
     Dosage: 6 MG, BID
     Route: 048
     Dates: start: 20020101, end: 20070411

REACTIONS (11)
  - ANGINA PECTORIS [None]
  - ARRHYTHMIA [None]
  - BACK DISORDER [None]
  - CARDIAC PACEMAKER INSERTION [None]
  - CHEST PAIN [None]
  - DYSPNOEA [None]
  - HAEMORRHOID OPERATION [None]
  - HAEMORRHOIDS [None]
  - MYOCARDIAL INFARCTION [None]
  - SPINAL FUSION SURGERY [None]
  - TRANSIENT ISCHAEMIC ATTACK [None]
